FAERS Safety Report 4820743-5 (Version None)
Quarter: 2005Q4

REPORT INFORMATION
  Report Type: 
  Country: None (occurrence: None)
  Receive Date: 20051104
  Receipt Date: 20050317
  Transmission Date: 20060501
  Serious: Yes (Hospitalization, Disabling, Other)
  Sender: FDA-Public Use
  Company Number: US-MERCK-0503USA03454

PATIENT
  Age: 61 Year
  Sex: Male
  Weight: 111 kg

DRUGS (5)
  1. VIOXX [Suspect]
     Indication: ARTHRITIS
     Route: 048
     Dates: start: 20021007, end: 20030909
  2. VIOXX [Suspect]
     Route: 048
     Dates: start: 20030910, end: 20041013
  3. PRAVACHOL [Concomitant]
     Indication: BLOOD CHOLESTEROL INCREASED
     Route: 048
     Dates: start: 20000701, end: 20050519
  4. AMARYL [Concomitant]
     Indication: DIABETES MELLITUS
     Route: 048
  5. COMBIVENT [Concomitant]
     Indication: SLEEP APNOEA SYNDROME
     Route: 065

REACTIONS (16)
  - AMNESIA [None]
  - ARTERIOSCLEROSIS [None]
  - BENIGN OESOPHAGEAL NEOPLASM [None]
  - BLOOD TRIGLYCERIDES INCREASED [None]
  - CEREBROVASCULAR ACCIDENT [None]
  - CHEST PAIN [None]
  - DYSPNOEA [None]
  - FALL [None]
  - HYPERTENSION [None]
  - HYPOXIA [None]
  - INTERSTITIAL LUNG DISEASE [None]
  - OEDEMA PERIPHERAL [None]
  - PAIN IN EXTREMITY [None]
  - ROTATOR CUFF SYNDROME [None]
  - TRANSIENT ISCHAEMIC ATTACK [None]
  - VISUAL DISTURBANCE [None]
